FAERS Safety Report 4963142-8 (Version None)
Quarter: 2006Q1

REPORT INFORMATION
  Report Type: 
  Country: None (occurrence: None)
  Receive Date: 20060331
  Receipt Date: 20060323
  Transmission Date: 20060701
  Serious: Yes (Other)
  Sender: FDA-Public Use
  Company Number: USA-2006-0023848

PATIENT
  Sex: Female

DRUGS (1)
  1. OXYCONTIN [Suspect]
     Dosage: MG

REACTIONS (4)
  - DRUG ABUSER [None]
  - HAEMATEMESIS [None]
  - INTENTIONAL DRUG MISUSE [None]
  - MALAISE [None]
